FAERS Safety Report 9416063 (Version 1)
Quarter: 2013Q3

REPORT INFORMATION
  Report Type: Spontaneous
  Country: DE (occurrence: DE)
  Receive Date: 20130724
  Receipt Date: 20130724
  Transmission Date: 20140515
  Serious: Yes (Other)
  Sender: FDA-Public Use
  Company Number: DE-MYLANLABS-2013S1015222

PATIENT
  Age: 69 Year
  Sex: Female

DRUGS (2)
  1. GABAPENTIN [Suspect]
     Indication: POLYNEUROPATHY IDIOPATHIC PROGRESSIVE
     Route: 048
  2. GABAPENTIN [Suspect]
     Indication: POLYNEUROPATHY IDIOPATHIC PROGRESSIVE

REACTIONS (4)
  - Pain in extremity [Recovered/Resolved]
  - Visual impairment [Recovered/Resolved]
  - Musculoskeletal stiffness [Recovered/Resolved]
  - Sensory level abnormal [Recovered/Resolved]
